FAERS Safety Report 7125213-X (Version None)
Quarter: 2010Q4

REPORT INFORMATION
  Report Type: 
  Country: None (occurrence: None)
  Receive Date: 20101115
  Receipt Date: 20101104
  Transmission Date: 20110411
  Serious: Yes (Other)
  Sender: FDA-Public Use
  Company Number: 2010SP058836

PATIENT
  Age: 24 Year
  Sex: Female

DRUGS (4)
  1. ASMANEX TWISTHALER [Suspect]
     Indication: ASTHMA
     Dosage: 220 MCG; BID; INH
     Route: 055
     Dates: start: 20101104, end: 20101104
  2. SINGULAIR [Concomitant]
  3. ALBUTEROL [Concomitant]
  4. NUVARING [Concomitant]

REACTIONS (1)
  - LOSS OF CONSCIOUSNESS [None]
